FAERS Safety Report 5241446-1 (Version None)
Quarter: 2007Q1

REPORT INFORMATION
  Report Type: 
  Country: None (occurrence: None)
  Receive Date: 20070212
  Receipt Date: 20070131
  Transmission Date: 20070707
  Serious: Yes (Other)
  Sender: FDA-Public Use
  Company Number: PAR_1159_2006

PATIENT
  Age: 75 Year
  Sex: Female
  Weight: 77.1115 kg

DRUGS (11)
  1. LISINOPRIL [Suspect]
     Dosage: 5 MG QDAY PO
     Route: 048
     Dates: start: 20050701
  2. PLAVIX [Suspect]
     Indication: STENT PLACEMENT
     Dosage: 75 MG QDAY PO
     Route: 048
     Dates: start: 20030701
  3. ASPIRIN [Suspect]
     Indication: STENT PLACEMENT
     Dosage: 81 MG QDAY PO
     Route: 048
     Dates: start: 20030701
  4. PRAVASTATIN SODIUM [Concomitant]
  5. EZETIMIBE [Concomitant]
  6. TOPROL-XL [Concomitant]
  7. IMDUR [Concomitant]
  8. LASIX [Concomitant]
  9. NEURONTIN [Concomitant]
  10. URSODIOL [Concomitant]
  11. METFORMIN HCL [Concomitant]

REACTIONS (5)
  - COUGH [None]
  - FOREIGN BODY TRAUMA [None]
  - HAEMOPTYSIS [None]
  - OEDEMA PERIPHERAL [None]
  - PAIN IN EXTREMITY [None]
